FAERS Safety Report 9899291 (Version 1)
Quarter: 2014Q1

REPORT INFORMATION
  Report Type: Spontaneous
  Country: JP (occurrence: JP)
  Receive Date: 20140214
  Receipt Date: 20140214
  Transmission Date: 20141002
  Serious: Yes (Other)
  Sender: FDA-Public Use
  Company Number: JP-BRISTOL-MYERS SQUIBB COMPANY-20181269

PATIENT
  Age: 6 Decade
  Sex: Male

DRUGS (2)
  1. ELIQUIS [Suspect]
     Indication: ISCHAEMIC STROKE
     Dosage: TABLET
     Route: 048
  2. ELIQUIS [Suspect]
     Indication: EMBOLISM
     Dosage: TABLET
     Route: 048

REACTIONS (1)
  - Renal failure [Unknown]
